FAERS Safety Report 5928958-X (Version None)
Quarter: 2008Q4

REPORT INFORMATION
  Report Type: 
  Country: None (occurrence: None)
  Receive Date: 20081024
  Receipt Date: 20081014
  Transmission Date: 20090506
  Serious: Yes (Other)
  Sender: FDA-Public Use
  Company Number: JP-AVENTIS-200815632EU

PATIENT
  Age: 56 Year
  Sex: Male

DRUGS (6)
  1. PREVACID [Suspect]
     Route: 048
     Dates: start: 20050421
  2. LASIX [Suspect]
     Indication: FLUID RETENTION
     Dosage: DOSE: 20-40 MG
     Route: 048
     Dates: start: 20050421
  3. GLUCOTROL [Suspect]
     Route: 048
     Dates: start: 20050421
  4. VYTORIN [Suspect]
     Dosage: DOSE: UNK
     Route: 048
     Dates: start: 20050421
  5. NIASPAN [Suspect]
     Route: 048
     Dates: start: 20050421
  6. TOPROL-XL [Suspect]
     Indication: DRUG USE FOR UNKNOWN INDICATION
     Route: 048
     Dates: start: 20050421, end: 20071001

REACTIONS (7)
  - ARTHRALGIA [None]
  - EYE HAEMORRHAGE [None]
  - FEELING DRUNK [None]
  - GAIT DISTURBANCE [None]
  - MACULAR OEDEMA [None]
  - VISUAL FIELD DEFECT [None]
  - VISUAL IMPAIRMENT [None]
